FAERS Safety Report 7229434-7 (Version None)
Quarter: 2011Q1

REPORT INFORMATION
  Report Type: 
  Country: None (occurrence: None)
  Receive Date: 20110117
  Receipt Date: 20110107
  Transmission Date: 20110831
  Serious: Yes (Hospitalization)
  Sender: FDA-Public Use
  Company Number: B0692164A

PATIENT
  Sex: Male
  Weight: 89 kg

DRUGS (2)
  1. TAMIFLU [Concomitant]
     Dates: start: 20101223, end: 20101227
  2. ZANAMIVIR [Suspect]
     Indication: H1N1 INFLUENZA
     Dosage: 600MG TWICE PER DAY
     Route: 042
     Dates: start: 20110101, end: 20110104

REACTIONS (3)
  - RENAL FAILURE [None]
  - PYREXIA [None]
  - DIALYSIS [None]
